FAERS Safety Report 15833308 (Version 1)
Quarter: 2018Q4

REPORT INFORMATION
  Report Type: Spontaneous
  Country: US (occurrence: US)
  Receive Date: 20181221
  Receipt Date: 20181221
  Transmission Date: 20190205
  Serious: Yes (Death)
  Sender: FDA-Public Use
  Company Number: None

PATIENT
  Age: 74 Year
  Sex: Male

DRUGS (8)
  1. SOTALOL HCL [Concomitant]
     Active Substance: SOTALOL
  2. JAKAFI [Concomitant]
     Active Substance: RUXOLITINIB
  3. PROBIOTIC [Concomitant]
     Active Substance: PROBIOTICS NOS
  4. JADENU [Suspect]
     Active Substance: DEFERASIROX
     Indication: MYELODYSPLASTIC SYNDROME
     Route: 048
     Dates: start: 20170701
  5. DANAZOL. [Concomitant]
     Active Substance: DANAZOL
  6. PROCRIR [Concomitant]
  7. VITAMIN C [Concomitant]
     Active Substance: ASCORBIC ACID
  8. PRILOSEC [Concomitant]
     Active Substance: OMEPRAZOLE MAGNESIUM

REACTIONS (1)
  - Disease progression [None]
